FAERS Safety Report 8036317-1 (Version None)
Quarter: 2012Q1

REPORT INFORMATION
  Report Type: 
  Country: None (occurrence: None)
  Receive Date: 20120111
  Receipt Date: 20110922
  Transmission Date: 20120608
  Serious: No
  Sender: FDA-Public Use
  Company Number: US-GLAXOSMITHKLINE-A0945620A

PATIENT
  Age: 88 Year
  Sex: Male

DRUGS (5)
  1. JALYN [Suspect]
     Indication: BLADDER DISORDER
     Dosage: 1CAP PER DAY
     Route: 048
     Dates: start: 20110915
  2. NORVASC [Concomitant]
  3. NEURONTIN [Concomitant]
  4. PINDOLOL [Concomitant]
  5. TRICOR [Concomitant]

REACTIONS (1)
  - DIZZINESS [None]
